FAERS Safety Report 25206678 (Version 2)
Quarter: 2025Q2

REPORT INFORMATION
  Report Type: Spontaneous
  Country: CN (occurrence: CN)
  Receive Date: 20250417
  Receipt Date: 20250423
  Transmission Date: 20250716
  Serious: Yes (Other)
  Sender: ASTELLAS
  Company Number: CN-ASTELLAS-2025-AER-020505

PATIENT
  Sex: Female

DRUGS (3)
  1. PADCEV [Suspect]
     Active Substance: ENFORTUMAB VEDOTIN-EJFV
     Indication: Bladder cancer
     Route: 065
  2. PADCEV [Suspect]
     Active Substance: ENFORTUMAB VEDOTIN-EJFV
     Route: 065
  3. PADCEV [Suspect]
     Active Substance: ENFORTUMAB VEDOTIN-EJFV
     Route: 065

REACTIONS (8)
  - Hyperpyrexia [Unknown]
  - Necrosis [Unknown]
  - C-reactive protein increased [Unknown]
  - Urostomy complication [Unknown]
  - Bacterial test [Unknown]
  - Oral disorder [Unknown]
  - Tongue disorder [Unknown]
  - Pyrexia [Recovered/Resolved]
